FAERS Safety Report 5328593-0 (Version None)
Quarter: 2007Q2

REPORT INFORMATION
  Report Type: 
  Country: None (occurrence: None)
  Receive Date: 20070518
  Receipt Date: 20070517
  Transmission Date: 20071010
  Serious: Yes (Other)
  Sender: FDA-Public Use
  Company Number: US-GENENTECH-239288

PATIENT
  Sex: Male
  Weight: 56.4 kg

DRUGS (3)
  1. SOMATROPIN [Suspect]
     Indication: NEOPLASM MALIGNANT
     Dosage: 2.5 MG, UNK
     Dates: start: 19960312
  2. SOMATROPIN [Suspect]
     Dosage: 0.2 MG, QD
     Dates: start: 20050101
  3. ULTRACET [Concomitant]
     Indication: DRUG USE FOR UNKNOWN INDICATION
     Dosage: UNK, QID
     Route: 048

REACTIONS (1)
  - MENINGIOMA [None]
